FAERS Safety Report 12838580 (Version 1)
Quarter: 2016Q4

REPORT INFORMATION
  Report Type: Spontaneous
  Country: US (occurrence: US)
  Receive Date: 20161011
  Receipt Date: 20161011
  Transmission Date: 20170207
  Serious: Yes (Death)
  Sender: FDA-Public Use
  Company Number: None

PATIENT
  Age: 86 Year
  Sex: Female
  Weight: 68.1 kg

DRUGS (2)
  1. ZOLOFT [Suspect]
     Active Substance: SERTRALINE HYDROCHLORIDE
     Indication: DEMENTIA ALZHEIMER^S TYPE
  2. GEODON [Suspect]
     Active Substance: ZIPRASIDONE HYDROCHLORIDE\ZIPRASIDONE MESYLATE
     Indication: DEMENTIA ALZHEIMER^S TYPE
     Dates: start: 20160806, end: 20160912

REACTIONS (4)
  - Seizure [None]
  - Drug interaction [None]
  - Contraindicated product administered [None]
  - Cardiac arrest [None]

NARRATIVE: CASE EVENT DATE: 20160912
